FAERS Safety Report 5763891-8 (Version None)
Quarter: 2008Q2

REPORT INFORMATION
  Report Type: 
  Country: None (occurrence: None)
  Receive Date: 20080602
  Receipt Date: 20080102
  Transmission Date: 20081010
  Serious: Yes (Other)
  Sender: FDA-Public Use
  Company Number: PHEH2008US00463

PATIENT
  Sex: Female

DRUGS (4)
  1. TEKTURNA [Suspect]
     Indication: HYPERTENSION
     Dosage: 150 MG
     Dates: start: 20071218
  2. HYZAAR (HYDROCHLOROTHIAZIDE, LOSARTATN POTASSIUM) [Concomitant]
  3. TOPROL-XL [Concomitant]
  4. DIGOXIN [Concomitant]

REACTIONS (6)
  - DRY MOUTH [None]
  - GLOSSITIS [None]
  - HYPERTENSION [None]
  - ORAL PAIN [None]
  - STOMATITIS [None]
  - SWOLLEN TONGUE [None]
